FAERS Safety Report 4753334-5 (Version None)
Quarter: 2005Q3

REPORT INFORMATION
  Report Type: 
  Country: None (occurrence: None)
  Receive Date: 20050826
  Receipt Date: 20050818
  Transmission Date: 20060218
  Serious: Yes (Hospitalization, Other)
  Sender: FDA-Public Use
  Company Number: GB-JNJFOC-20050804261

PATIENT
  Sex: Female
  Weight: 52 kg

DRUGS (8)
  1. REMICADE [Suspect]
     Indication: RHEUMATOID ARTHRITIS
     Route: 042
  2. FERROUS SULFATE TAB [Concomitant]
     Route: 065
  3. METHOTREXATE [Concomitant]
     Route: 065
  4. CELEBREX [Concomitant]
     Route: 065
  5. FOLIC ACID [Concomitant]
     Route: 065
  6. ALENDRONATE [Concomitant]
     Route: 065
  7. BENDROFLUAZIDE [Concomitant]
     Route: 065
  8. OMERPRAZOLE [Concomitant]
     Route: 065

REACTIONS (1)
  - HUMERUS FRACTURE [None]
